FAERS Safety Report 23086648 (Version 1)
Quarter: 2023Q4

REPORT INFORMATION
  Report Type: Spontaneous
  Country: US (occurrence: None)
  Receive Date: 20231019
  Receipt Date: 20231019
  Transmission Date: 20240110
  Serious: Yes (Death, Other)
  Sender: FDA-Public Use
  Company Number: US-ENDO-CASE-0032639

PATIENT
  Sex: Female

DRUGS (11)
  1. TRAMADOL HYDROCHLORIDE [Suspect]
     Active Substance: TRAMADOL HYDROCHLORIDE
  2. ACETAMINOPHEN\OXYCODONE HYDROCHLORIDE [Suspect]
     Active Substance: ACETAMINOPHEN\OXYCODONE HYDROCHLORIDE
  3. ACETAMINOPHEN\HYDROCODONE BITARTRATE [Suspect]
     Active Substance: ACETAMINOPHEN\HYDROCODONE BITARTRATE
  4. ATORVASTATIN [Suspect]
     Active Substance: ATORVASTATIN
  5. PROPRANOLOL [Suspect]
     Active Substance: PROPRANOLOL HYDROCHLORIDE
  6. IMITREX [Suspect]
     Active Substance: SUMATRIPTAN SUCCINATE
  7. TEMAZEPAM [Suspect]
     Active Substance: TEMAZEPAM
  8. QUETIAPINE [Suspect]
     Active Substance: QUETIAPINE
  9. NAPROXEN [Suspect]
     Active Substance: NAPROXEN
  10. MORPHINE SULFATE [Suspect]
     Active Substance: MORPHINE SULFATE
  11. FLUOXETINE [Suspect]
     Active Substance: FLUOXETINE HYDROCHLORIDE

REACTIONS (2)
  - Death [Fatal]
  - Dependence [Unknown]
